FAERS Safety Report 7383234-6 (Version None)
Quarter: 2011Q1

REPORT INFORMATION
  Report Type: 
  Country: None (occurrence: None)
  Receive Date: 20110330
  Receipt Date: 20110318
  Transmission Date: 20110831
  Serious: Yes (Other)
  Sender: FDA-Public Use
  Company Number: PHHY2006BR02712

PATIENT
  Age: 32 Year
  Sex: Female

DRUGS (1)
  1. TEGRETOL-XR [Suspect]
     Dosage: UNK UKN, UNK

REACTIONS (6)
  - HEAD INJURY [None]
  - EPILEPSY [None]
  - TONGUE INJURY [None]
  - LIP INJURY [None]
  - FALL [None]
  - DRUG INEFFECTIVE [None]
